FAERS Safety Report 8180964-3 (Version None)
Quarter: 2012Q1

REPORT INFORMATION
  Report Type: 
  Country: None (occurrence: None)
  Receive Date: 20120302
  Receipt Date: 20120227
  Transmission Date: 20120608
  Serious: Yes (Hospitalization, Other)
  Sender: FDA-Public Use
  Company Number: DE-ABBOTT-12P-062-0909546-00

PATIENT
  Sex: Male
  Weight: 78 kg

DRUGS (6)
  1. ALENDRONIC ACID [Concomitant]
     Indication: PRODUCT USED FOR UNKNOWN INDICATION
     Dates: start: 20101024
  2. KALETRA [Suspect]
     Indication: HIV INFECTION
     Route: 048
     Dates: start: 20090601
  3. COTRIM DS [Concomitant]
     Indication: HIV INFECTION
     Dosage: 0.5 PER DAY
     Route: 048
     Dates: start: 20090701
  4. LOPERAMIDE HCL [Concomitant]
     Indication: PRODUCT USED FOR UNKNOWN INDICATION
     Route: 048
     Dates: start: 20090807
  5. ISENTRESS [Concomitant]
     Indication: PRODUCT USED FOR UNKNOWN INDICATION
     Dates: start: 20090601
  6. CALCIVIT D [Concomitant]
     Indication: PRODUCT USED FOR UNKNOWN INDICATION

REACTIONS (12)
  - CEREBRAL ISCHAEMIA [None]
  - BALANCE DISORDER [None]
  - VERTIGO [None]
  - CHEST PAIN [None]
  - FALL [None]
  - ENCEPHALITIS [None]
  - CONTUSION [None]
  - PAINFUL RESPIRATION [None]
  - INNER EAR DISORDER [None]
  - GAIT DISTURBANCE [None]
  - COORDINATION ABNORMAL [None]
  - AIDS ENCEPHALOPATHY [None]
